FAERS Safety Report 6080919-9 (Version None)
Quarter: 2009Q1

REPORT INFORMATION
  Report Type: 
  Country: None (occurrence: None)
  Receive Date: 20090217
  Receipt Date: 20090217
  Transmission Date: 20090719
  Serious: Yes (Hospitalization)
  Sender: FDA-Public Use
  Company Number: JM-B.I. PHARMACEUTICALS,INC./RIDGEFIELD-2009-BP-01865NB

PATIENT
  Age: 2 Year
  Sex: Male

DRUGS (1)
  1. CATAPRES [Suspect]
     Route: 048
     Dates: start: 20090215

REACTIONS (2)
  - BLOOD PRESSURE DECREASED [None]
  - MEDICATION ERROR [None]
